FAERS Safety Report 4635472-0 (Version None)
Quarter: 2005Q2

REPORT INFORMATION
  Report Type: 
  Country: None (occurrence: None)
  Receive Date: 20050414
  Receipt Date: 20050401
  Transmission Date: 20051028
  Serious: Yes (Death)
  Sender: FDA-Public Use
  Company Number: 2005053843

PATIENT
  Age: 71 Year
  Sex: Female

DRUGS (1)
  1. VFEND [Suspect]
     Indication: ILL-DEFINED DISORDER
     Dosage: 400 MG (200 MG, BID) ORAL
     Route: 048

REACTIONS (1)
  - DEATH [None]
